FAERS Safety Report 21574184 (Version 1)
Quarter: 2022Q4

REPORT INFORMATION
  Report Type: Spontaneous
  Country: US (occurrence: US)
  Receive Date: 20221109
  Receipt Date: 20221109
  Transmission Date: 20230113
  Serious: No
  Sender: FDA-Public Use
  Company Number: US-GILEAD-2022-0604314

PATIENT
  Sex: Male

DRUGS (2)
  1. TRUVADA [Suspect]
     Active Substance: EMTRICITABINE\TENOFOVIR DISOPROXIL FUMARATE
     Indication: Prophylaxis against HIV infection
     Route: 065
  2. IRON [Concomitant]
     Active Substance: IRON

REACTIONS (3)
  - Diarrhoea [Recovered/Resolved]
  - Abdominal pain [Unknown]
  - Flatulence [Unknown]
